FAERS Safety Report 7236774-4 (Version None)
Quarter: 2011Q1

REPORT INFORMATION
  Report Type: 
  Country: None (occurrence: None)
  Receive Date: 20110120
  Receipt Date: 20110117
  Transmission Date: 20110831
  Serious: Yes (Death)
  Sender: FDA-Public Use
  Company Number: DE-PFIZER INC-DE-WYE-G05738010

PATIENT
  Age: 59 Year
  Sex: Male

DRUGS (38)
  1. LYRICA [Suspect]
     Dosage: 1 DF, 3X/DAY
     Route: 048
     Dates: start: 20080128, end: 20080201
  2. KETAMINE [Suspect]
     Dosage: 30 MG, 1X/DAY
     Route: 042
     Dates: start: 20080201, end: 20080201
  3. INSULIN HUMAN [Suspect]
     Indication: HYPERGLYCAEMIA
     Dosage: UNK
     Route: 042
     Dates: start: 20080128, end: 20080203
  4. KABIVEN [Concomitant]
     Dosage: UNK
     Route: 042
     Dates: start: 20080131, end: 20080203
  5. GELAFUNDIN [Concomitant]
     Dosage: UNK
     Route: 042
     Dates: start: 20080204, end: 20080204
  6. PIPERACILLIN AND TAZOBACTAM [Suspect]
     Indication: ARTHRITIS
     Dosage: 4.5 G 2-3 TIMES PER DAY
     Route: 042
     Dates: start: 20071228, end: 20080131
  7. HEPARIN SODIUM [Suspect]
     Indication: THROMBOSIS PROPHYLAXIS
     Dosage: UNK
     Route: 042
     Dates: start: 20080117
  8. DULCOLAX [Suspect]
     Indication: CONSTIPATION
     Dosage: 10 MG, 1X/DAY
     Route: 054
     Dates: start: 20080127, end: 20080127
  9. CALCIUM CHLORIDE DIHYDRATE [Concomitant]
     Dosage: UNK
     Route: 042
     Dates: start: 20080127, end: 20080127
  10. GLUCOSE INJECTION [Concomitant]
     Dosage: UNK
     Route: 042
     Dates: start: 20080204, end: 20080204
  11. DIPIDOLOR [Concomitant]
     Dosage: UNK
     Route: 042
     Dates: start: 20080202, end: 20080202
  12. NORMOFUNDIN [Concomitant]
     Dosage: UNK
     Route: 042
     Dates: start: 20080126, end: 20080126
  13. LORAZEPAM [Suspect]
     Dosage: UNK
     Route: 048
     Dates: start: 20080123, end: 20080124
  14. KETAMINE [Suspect]
     Dosage: 50 MG, 1X/DAY
     Route: 042
     Dates: start: 20080128, end: 20080128
  15. BELOC ZOK [Suspect]
     Indication: HYPERTENSION
     Dosage: 95 MG, 2X/DAY
     Route: 048
     Dates: start: 20080127
  16. BELOC [Suspect]
     Indication: HYPERTENSION
     Dosage: 5 MG, 1X/DAY
     Route: 042
     Dates: start: 20080126, end: 20080127
  17. DURAGESIC-100 [Concomitant]
     Dosage: UNK
     Route: 062
     Dates: start: 20071202
  18. GLUCOSE INJECTION [Concomitant]
     Dosage: UNK
     Route: 042
     Dates: start: 20080124, end: 20080129
  19. JONOSTERIL [Concomitant]
     Dosage: UNK
     Route: 042
     Dates: start: 20080124, end: 20080131
  20. POTASSIUM CHLORIDE [Concomitant]
     Dosage: UNK
     Route: 042
     Dates: start: 20080130
  21. PROPOFOL [Suspect]
     Indication: STUPOR
     Dosage: UNK
     Route: 042
     Dates: start: 20080123, end: 20080127
  22. DORMICUM [Suspect]
     Dosage: 2-6 MG PER DAY
     Route: 042
     Dates: start: 20080201, end: 20080201
  23. POTASSIUM CHLORIDE [Concomitant]
     Dosage: UNK
     Route: 042
     Dates: start: 20080127, end: 20080128
  24. NORMOFUNDIN [Concomitant]
     Dosage: UNK
     Route: 042
     Dates: start: 20080202
  25. CIPROFLOXACIN [Suspect]
     Indication: ARTHRITIS
     Dosage: 200 MG 1-2 TIMES PER DAY
     Route: 042
     Dates: start: 20080114
  26. ULTIVA [Suspect]
     Indication: STUPOR
     Dosage: 5.0 MG, 1X/DAY
     Route: 042
     Dates: start: 20080123, end: 20080127
  27. DORMICUM [Suspect]
     Indication: RESTLESSNESS
     Dosage: 2-6 MG PER DAY
     Route: 042
     Dates: start: 20080130, end: 20080130
  28. LEVOTHYROXINE SODIUM [Suspect]
     Indication: HYPOTHYROIDISM
     Dosage: 125-150 ?G PER DAY
     Route: 048
     Dates: start: 20080129
  29. JONOSTERIL PAED I/II/III [Concomitant]
     Dosage: UNK
     Route: 042
     Dates: start: 20080202
  30. JONOSTERIL PAED I/II/III [Concomitant]
     Dosage: UNK
     Route: 042
     Dates: start: 20080126, end: 20080126
  31. FURORESE [Suspect]
     Indication: POLYURIA
     Dosage: 250 MG, 1X/DAY
     Route: 042
     Dates: start: 20080117, end: 20080131
  32. NEXIUM [Suspect]
     Indication: PROPHYLAXIS AGAINST GASTROINTESTINAL ULCER
     Dosage: 40 MG, 1X/DAY
     Route: 048
     Dates: start: 20080120
  33. AKRINOR [Concomitant]
     Dosage: UNK
     Route: 042
     Dates: start: 20080123, end: 20080124
  34. FLUCONAZOLE [Suspect]
     Dosage: 400 MG, 1X/DAY
     Route: 042
     Dates: start: 20080114, end: 20080128
  35. KETAMINE [Suspect]
     Indication: STUPOR
     Dosage: 1500 MG, 1X/DAY
     Route: 042
     Dates: start: 20080124, end: 20080124
  36. SODIUM CHLORIDE [Concomitant]
     Dosage: UNK
     Route: 042
     Dates: start: 20080109
  37. HYDROCORTISONE SODIUM SUCCINATE [Suspect]
     Dosage: 100 MG, 1X/DAY
     Route: 042
     Dates: start: 20080129, end: 20080129
  38. KETAMINE [Suspect]
     Dosage: 40 MG, 1X/DAY
     Route: 042
     Dates: start: 20080130, end: 20080130

REACTIONS (2)
  - STEVENS-JOHNSON SYNDROME [None]
  - TOXIC EPIDERMAL NECROLYSIS [None]
